FAERS Safety Report 6472229-2 (Version None)
Quarter: 2010Q1

REPORT INFORMATION
  Report Type: 
  Country: None (occurrence: None)
  Receive Date: 20091130
  Receipt Date: 20091112
  Transmission Date: 20100710
  Serious: Yes (Hospitalization)
  Sender: FDA-Public Use
  Company Number: RENA-1000572

PATIENT
  Age: 60 Year
  Sex: Female
  Weight: 62 kg

DRUGS (5)
  1. RENVELA [Suspect]
     Indication: HYPERPHOSPHATAEMIA
     Dosage: 2.4 G, QD, ORAL
     Route: 048
     Dates: start: 20090924
  2. LEVOTHYROXINE SODIUM [Concomitant]
  3. DREISAVIT (ASCORBIC ACID, CALCIUM PANTOTHENATE, FOLIC ACID, NICOTINAMI [Concomitant]
  4. FERRLECIT [Concomitant]
  5. NEORECORMON (EPOETIN BETA) [Concomitant]

REACTIONS (5)
  - HYPERADRENALISM [None]
  - HYPOPHAGIA [None]
  - NEPHROCALCINOSIS [None]
  - RENAL HYPOPLASIA [None]
  - SUBILEUS [None]
